FAERS Safety Report 5602578-9 (Version None)
Quarter: 2008Q1

REPORT INFORMATION
  Report Type: 
  Country: None (occurrence: None)
  Receive Date: 20080125
  Receipt Date: 20080115
  Transmission Date: 20080703
  Serious: Yes (Life-Threatening, Hospitalization)
  Sender: FDA-Public Use
  Company Number: US-WYE-H02120308

PATIENT
  Age: 46 Year
  Sex: Male
  Weight: 86.26 kg

DRUGS (5)
  1. EFFEXOR XR [Suspect]
     Indication: MAJOR DEPRESSION
     Route: 048
     Dates: start: 20080109, end: 20080109
  2. ESOMEPRAZOLE [Concomitant]
     Dosage: UNKNOWN
  3. REQUIP [Concomitant]
     Dosage: UNKNOWN
  4. LORTAB [Concomitant]
     Dosage: UNKNOWN
  5. CLONOPIN [Concomitant]
     Dosage: UNKNOWN

REACTIONS (1)
  - ANGIOEDEMA [None]
